FAERS Safety Report 14292493 (Version 1)
Quarter: 2017Q4

REPORT INFORMATION
  Report Type: Other
  Country: US (occurrence: US)
  Receive Date: 20171215
  Receipt Date: 20171215
  Transmission Date: 20180321
  Serious: No
  Sender: FDA-Public Use
  Company Number: US-ORIT LABORATORIES LLC-2037232

PATIENT
  Sex: Female

DRUGS (3)
  1. ERGOCALCIFEROL. [Suspect]
     Active Substance: ERGOCALCIFEROL
     Indication: VITAMIN D DECREASED
     Route: 048
     Dates: start: 20171126
  2. XANAX [Concomitant]
     Active Substance: ALPRAZOLAM
     Route: 048
  3. VALTREX [Concomitant]
     Active Substance: VALACYCLOVIR HYDROCHLORIDE
     Route: 048

REACTIONS (5)
  - Gastrointestinal disorder [Unknown]
  - Appetite disorder [Unknown]
  - Nausea [Unknown]
  - Gastrointestinal motility disorder [Unknown]
  - Decreased appetite [Unknown]
